FAERS Safety Report 18439484 (Version 1)
Quarter: 2020Q4

REPORT INFORMATION
  Report Type: Spontaneous
  Country: PT (occurrence: PT)
  Receive Date: 20201028
  Receipt Date: 20201028
  Transmission Date: 20210114
  Serious: Yes (Other)
  Sender: FDA-Public Use
  Company Number: PT-ELI_LILLY_AND_COMPANY-PT202010008837

PATIENT
  Age: 47 Year
  Sex: Male

DRUGS (2)
  1. GEMCITABINE HYDROCHLORIDE. [Suspect]
     Active Substance: GEMCITABINE HYDROCHLORIDE
     Indication: DUCTAL ADENOCARCINOMA OF PANCREAS
     Dosage: 1000 MG/M2, CYCLICAL
     Route: 042
  2. CAPECITABINE. [Concomitant]
     Active Substance: CAPECITABINE
     Indication: DUCTAL ADENOCARCINOMA OF PANCREAS
     Dosage: UNK, CYCLICAL
     Route: 065

REACTIONS (5)
  - Skin ulcer [Recovered/Resolved]
  - Dysaesthesia [Recovered/Resolved]
  - Palmar-plantar erythrodysaesthesia syndrome [Recovered/Resolved]
  - Skin necrosis [Recovered/Resolved]
  - Thrombocytopenia [Unknown]
